FAERS Safety Report 5275223-2 (Version None)
Quarter: 2007Q1

REPORT INFORMATION
  Report Type: 
  Country: None (occurrence: None)
  Receive Date: 20061213
  Receipt Date: 20051019
  Transmission Date: 20070707
  Serious: No
  Sender: FDA-Public Use
  Company Number: 2005UW13336

PATIENT
  Age: 15 Year
  Sex: Female
  Weight: 71.6683 kg

DRUGS (2)
  1. SEROQUEL [Suspect]
     Indication: DEPRESSION
     Dosage: 2200 MG PO
     Route: 048
  2. SEROQUEL [Suspect]
     Indication: DEPRESSION
     Dosage: 200 MG QD PO
     Route: 048

REACTIONS (2)
  - OVERDOSE [None]
  - SUICIDE ATTEMPT [None]
